FAERS Safety Report 19179675 (Version 1)
Quarter: 2021Q2

REPORT INFORMATION
  Report Type: Spontaneous
  Country: US (occurrence: US)
  Receive Date: 20210424
  Receipt Date: 20210424
  Transmission Date: 20210717
  Serious: Yes (Death, Hospitalization)
  Sender: FDA-Public Use
  Company Number: None

PATIENT
  Age: 69 Year
  Sex: Female
  Weight: 58.1 kg

DRUGS (10)
  1. ETOPOSIDE (VP?16) [Suspect]
     Active Substance: ETOPOSIDE
     Dates: end: 20190718
  2. METHOTREXATE. [Suspect]
     Active Substance: METHOTREXATE
     Dates: end: 20190715
  3. DAUNORUBICIN [Suspect]
     Active Substance: DAUNORUBICIN
     Dates: end: 20190201
  4. DEXAMETHASONE. [Suspect]
     Active Substance: DEXAMETHASONE
     Dates: end: 20190116
  5. ONCASPAR [Suspect]
     Active Substance: PEGASPARGASE
     Dates: end: 20190718
  6. CYCLOPHOSPHAMIDE. [Suspect]
     Active Substance: CYCLOPHOSPHAMIDE
     Dates: end: 20190408
  7. RITUXIMAB (MOAB C2B8 ANTO CD20, CHIMERIC) [Suspect]
     Active Substance: RITUXIMAB
     Dates: end: 20190117
  8. MERCAPTOPURINE. [Suspect]
     Active Substance: MERCAPTOPURINE
     Dates: end: 20190430
  9. VINCRISTINE SULFATE. [Suspect]
     Active Substance: VINCRISTINE SULFATE
     Dates: end: 20190201
  10. CYTARABINE. [Suspect]
     Active Substance: CYTARABINE
     Dates: end: 20190718

REACTIONS (12)
  - Decreased appetite [None]
  - Hypophagia [None]
  - Pain [None]
  - Blood pressure decreased [None]
  - Proteus test positive [None]
  - Confusional state [None]
  - Pulse absent [None]
  - Fall [None]
  - Oxygen saturation decreased [None]
  - Diarrhoea [None]
  - Contusion [None]
  - Neutropenia [None]

NARRATIVE: CASE EVENT DATE: 20190730
